FAERS Safety Report 7924444-6 (Version None)
Quarter: 2011Q4

REPORT INFORMATION
  Report Type: 
  Country: None (occurrence: None)
  Receive Date: 20111117
  Receipt Date: 20110322
  Transmission Date: 20120403
  Serious: No
  Sender: FDA-Public Use
  Company Number: US-AMGEN-USASP2011015501

PATIENT
  Age: 84 Year
  Sex: Female

DRUGS (6)
  1. AMBIEN [Concomitant]
  2. PREDNISONE TAB [Concomitant]
  3. TRAMADOL HCL [Concomitant]
  4. TYLENOL (CAPLET) [Concomitant]
  5. IMURAN [Concomitant]
  6. ENBREL [Suspect]
     Indication: RHEUMATOID ARTHRITIS
     Dosage: 50 MG, QWK
     Dates: start: 20110214

REACTIONS (2)
  - LETHARGY [None]
  - OROPHARYNGEAL PAIN [None]
